FAERS Safety Report 8883225 (Version 2)
Quarter: 2013Q1

REPORT INFORMATION
  Report Type: Spontaneous
  Country: BR (occurrence: BR)
  Receive Date: 20121102
  Receipt Date: 20130319
  Transmission Date: 20140127
  Serious: Yes (Hospitalization, Other)
  Sender: FDA-Public Use
  Company Number: PHHY2012BR099354

PATIENT
  Sex: Female
  Weight: 104 kg

DRUGS (4)
  1. DIOVAN HCT [Suspect]
     Indication: HYPERTENSION
     Dosage: 1 DF (160/12.5 MG), IN THE MORNING
     Route: 048
  2. FORASEQ [Suspect]
     Indication: ASTHMA
     Dosage: 1 DF, TWO TIMES A DAY
  3. CORTICOSTEROIDS [Suspect]
     Indication: ASTHMA
     Dosage: UNK UKN, UNK
  4. ANTIDEPRESSANTS [Concomitant]
     Dosage: UNK UKN, UNK

REACTIONS (2)
  - Obesity [Recovering/Resolving]
  - Weight increased [Recovering/Resolving]
